FAERS Safety Report 11201668 (Version 2)
Quarter: 2017Q2

REPORT INFORMATION
  Report Type: Spontaneous
  Country: CN (occurrence: CN)
  Receive Date: 20150619
  Receipt Date: 20170420
  Transmission Date: 20170829
  Serious: Yes (Death, Other)
  Sender: FDA-Public Use
  Company Number: CN-SUN PHARMACEUTICAL INDUSTRIES LTD-2015R1-99022

PATIENT
  Age: 77 Year
  Sex: Male

DRUGS (4)
  1. PREDNISONE. [Suspect]
     Active Substance: PREDNISONE
     Indication: ACUTE MYELOID LEUKAEMIA
     Dosage: 50 MG EVERY OTHER DAY FROM D1 TO D7 FOR THREE CYCLES
     Route: 065
     Dates: start: 20131128
  2. IFOSFAMIDE. [Suspect]
     Active Substance: IFOSFAMIDE
     Indication: ACUTE MYELOID LEUKAEMIA
     Dosage: 0.5 G FROM D1 TO D4 FOR THREE CYCLES
     Route: 065
     Dates: start: 20131128
  3. VINDESINE [Suspect]
     Active Substance: VINDESINE
     Indication: ACUTE MYELOID LEUKAEMIA
     Dosage: 4 MG, D1 FOR THREE CYCLES
     Route: 065
     Dates: start: 20131128
  4. CYTARABINE. [Suspect]
     Active Substance: CYTARABINE
     Indication: ACUTE MYELOID LEUKAEMIA
     Dosage: 100 MG EVERY OTHER DAY FROM D1 TO D7 FOR THREE CYCLES
     Route: 065
     Dates: start: 20131128

REACTIONS (8)
  - Tuberculosis [Unknown]
  - Agranulocytosis [Unknown]
  - Pleural effusion [Unknown]
  - Candida infection [Unknown]
  - Respiratory failure [Fatal]
  - Anaemia [Unknown]
  - Pancytopenia [Unknown]
  - Pneumonia [Unknown]

NARRATIVE: CASE EVENT DATE: 2013
